FAERS Safety Report 13396742 (Version 1)
Quarter: 2017Q2

REPORT INFORMATION
  Report Type: Spontaneous
  Country: US (occurrence: US)
  Receive Date: 20170403
  Receipt Date: 20170403
  Transmission Date: 20170830
  Serious: No
  Sender: FDA-Public Use
  Company Number: None

PATIENT
  Age: 49 Year
  Sex: Female
  Weight: 68.04 kg

DRUGS (10)
  1. SULFUR FACE WASH [Concomitant]
  2. NEXPLANON [Suspect]
     Active Substance: ETONOGESTREL
     Dates: start: 20160203
  3. BIOTE ADK [Concomitant]
  4. FINACEA [Concomitant]
     Active Substance: AZELAIC ACID
  5. TRIAMCINOLAONE ACETORIDE CREAM [Concomitant]
  6. BIOTE HORMONE IMPLANT [Concomitant]
  7. VITAMIN D [Concomitant]
     Active Substance: CHOLECALCIFEROL
  8. OMEGA 3 [Concomitant]
     Active Substance: OMEGA-3 FATTY ACIDS
  9. BIOTE DIM [Concomitant]
  10. ACZONE [Concomitant]
     Active Substance: DAPSONE

REACTIONS (2)
  - Haemorrhage [None]
  - Device dislocation [None]

NARRATIVE: CASE EVENT DATE: 20170322
